FAERS Safety Report 26183033 (Version 1)
Quarter: 2025Q4

REPORT INFORMATION
  Report Type: Spontaneous
  Country: US (occurrence: US)
  Receive Date: 20251221
  Receipt Date: 20251221
  Transmission Date: 20260118
  Serious: Yes (Other)
  Sender: COLLEGIUM PHARMACEUTICAL
  Company Number: US-COLLEGIUM PHARMACEUTICAL, INC.-20251202850

PATIENT

DRUGS (6)
  1. XTAMPZA ER [Suspect]
     Active Substance: OXYCODONE
     Indication: Intervertebral disc degeneration
     Dosage: 27 MILLIGRAM, BID
     Route: 048
     Dates: start: 2018
  2. XTAMPZA ER [Suspect]
     Active Substance: OXYCODONE
     Indication: Back pain
  3. XTAMPZA ER [Suspect]
     Active Substance: OXYCODONE
     Indication: Arthralgia
  4. PERCOCET [Suspect]
     Active Substance: ACETAMINOPHEN\OXYCODONE HYDROCHLORIDE
     Indication: Breakthrough pain
     Dosage: 10/325, FIVE TIMES DAILY
     Route: 065
     Dates: start: 2011
  5. PYRIGESIC [Concomitant]
     Indication: Product used for unknown indication
     Dosage: UNK, UNKNOWN
     Route: 065
  6. BUPROPION HYDROCHLORIDE [Concomitant]
     Active Substance: BUPROPION HYDROCHLORIDE
     Indication: Depression
     Dosage: 150 MILLIGRAM, QD
     Route: 065

REACTIONS (6)
  - Fall [Unknown]
  - Shoulder arthroplasty [Unknown]
  - Gait disturbance [Unknown]
  - Abdominal discomfort [Unknown]
  - Breakthrough pain [Unknown]
  - Therapeutic product effect decreased [Not Recovered/Not Resolved]

NARRATIVE: CASE EVENT DATE: 20220101
